FAERS Safety Report 21261144 (Version 3)
Quarter: 2022Q4

REPORT INFORMATION
  Report Type: Report from Study
  Country: JP (occurrence: JP)
  Receive Date: 20220826
  Receipt Date: 20221229
  Transmission Date: 20230113
  Serious: Yes (Other)
  Sender: FDA-Public Use
  Company Number: JP-BAUSCH-BL-2022-020967

PATIENT
  Sex: Male

DRUGS (11)
  1. BRODALUMAB [Suspect]
     Active Substance: BRODALUMAB
     Indication: Ankylosing spondylitis
     Route: 058
     Dates: start: 20220112, end: 20220126
  2. BRODALUMAB [Suspect]
     Active Substance: BRODALUMAB
     Route: 058
     Dates: start: 20210707, end: 20210804
  3. BRODALUMAB [Suspect]
     Active Substance: BRODALUMAB
     Dosage: DURATION: 1 MONTH 12 DAYS
     Route: 058
     Dates: start: 20210820, end: 20211001
  4. BRODALUMAB [Suspect]
     Active Substance: BRODALUMAB
     Dosage: DURATION: 2 MONTHS 6 DAYS
     Route: 058
     Dates: start: 20211022, end: 20211227
  5. BRODALUMAB [Suspect]
     Active Substance: BRODALUMAB
     Route: 058
     Dates: start: 20220214, end: 20220214
  6. BRODALUMAB [Suspect]
     Active Substance: BRODALUMAB
     Dosage: DURATION: 3 MONTHS 7 DAYS
     Route: 058
     Dates: start: 20220302, end: 20220608
  7. BRODALUMAB [Suspect]
     Active Substance: BRODALUMAB
     Route: 058
     Dates: start: 20220701
  8. TRAMADOL HYDROCHLORIDE [Concomitant]
     Active Substance: TRAMADOL HYDROCHLORIDE
     Indication: Product used for unknown indication
     Dosage: ORAL DRUG UNSPECIFIED FORM
     Route: 048
  9. FEBUXOSTAT [Concomitant]
     Active Substance: FEBUXOSTAT
     Indication: Product used for unknown indication
     Dosage: ORAL DRUG UNSPECIFIED FORM
     Route: 048
  10. MAGNESIUM OXIDE [Concomitant]
     Active Substance: MAGNESIUM OXIDE
     Indication: Product used for unknown indication
     Dosage: ORAL DRUG UNSPECIFIED FORM
     Route: 048
  11. OMEPRAZOLE [Concomitant]
     Active Substance: OMEPRAZOLE
     Indication: Product used for unknown indication
     Dosage: ORAL DRUG UNSPECIFIED FORM
     Route: 048

REACTIONS (3)
  - Ankylosing spondylitis [Recovered/Resolved]
  - C-reactive protein increased [Unknown]
  - Arthralgia [Recovered/Resolved]

NARRATIVE: CASE EVENT DATE: 20220207
